FAERS Safety Report 8060047-3 (Version None)
Quarter: 2012Q1

REPORT INFORMATION
  Report Type: 
  Country: None (occurrence: None)
  Receive Date: 20120120
  Receipt Date: 20120118
  Transmission Date: 20120608
  Serious: Yes (Other)
  Sender: FDA-Public Use
  Company Number: US-SHIRE-ALL1-2012-00277

PATIENT
  Sex: Female
  Weight: 47.619 kg

DRUGS (1)
  1. VYVANSE [Suspect]
     Indication: ATTENTION DEFICIT/HYPERACTIVITY DISORDER
     Dosage: 40 MG, 1X/DAY:QD
     Route: 048
     Dates: start: 20111101

REACTIONS (6)
  - LOSS OF CONSCIOUSNESS [None]
  - IMPULSIVE BEHAVIOUR [None]
  - EMOTIONAL DISORDER [None]
  - LEGAL PROBLEM [None]
  - IMPRISONMENT [None]
  - ANGER [None]
